FAERS Safety Report 12498333 (Version 3)
Quarter: 2016Q4

REPORT INFORMATION
  Report Type: Spontaneous
  Country: US (occurrence: US)
  Receive Date: 20160627
  Receipt Date: 20161110
  Transmission Date: 20170207
  Serious: Yes (Hospitalization, Other)
  Sender: FDA-Public Use
  Company Number: US-BAYER-2016-117917

PATIENT
  Age: 62 Year
  Sex: Male
  Weight: 87.98 kg

DRUGS (13)
  1. AVELOX [Suspect]
     Active Substance: MOXIFLOXACIN HYDROCHLORIDE
     Indication: SINUSITIS
     Dosage: 400 MG, UNK
     Dates: start: 20081103, end: 20081203
  2. AVELOX [Suspect]
     Active Substance: MOXIFLOXACIN HYDROCHLORIDE
     Indication: SINUSITIS
     Dosage: 400 MG, UNK
     Dates: start: 20090418, end: 20090427
  3. VALIUM [Concomitant]
     Active Substance: DIAZEPAM
     Indication: MUSCLE SPASMS
     Dosage: 5 MG, UNK
  4. AVELOX [Suspect]
     Active Substance: MOXIFLOXACIN HYDROCHLORIDE
     Indication: SINUSITIS
     Dosage: 400 MG, UNK
     Dates: start: 20051024, end: 20051113
  5. AVELOX [Suspect]
     Active Substance: MOXIFLOXACIN HYDROCHLORIDE
     Indication: SINUSITIS
     Dosage: 400 MG, UNK
     Dates: start: 20051017, end: 20051027
  6. PREDNISONE. [Suspect]
     Active Substance: PREDNISONE
     Indication: INFLAMMATION
     Dosage: UNK
  7. AVELOX [Suspect]
     Active Substance: MOXIFLOXACIN HYDROCHLORIDE
     Indication: SINUSITIS
     Dosage: 400 MG, UNK
     Dates: start: 20071231, end: 20160113
  8. CIPRO [Suspect]
     Active Substance: CIPROFLOXACIN HYDROCHLORIDE
     Dosage: UNK
  9. AVELOX [Suspect]
     Active Substance: MOXIFLOXACIN HYDROCHLORIDE
     Indication: SINUSITIS
     Dosage: 400 MG, UNK
     Dates: start: 20061216, end: 20061220
  10. SIMVASTATIN. [Concomitant]
     Active Substance: SIMVASTATIN
     Indication: BLOOD CHOLESTEROL ABNORMAL
     Dosage: 10 MG, UNK
     Dates: start: 2000
  11. AVELOX [Suspect]
     Active Substance: MOXIFLOXACIN HYDROCHLORIDE
     Indication: SINUSITIS
     Dosage: 400 MG, UNK
     Dates: start: 20061019, end: 20061102
  12. AVELOX [Suspect]
     Active Substance: MOXIFLOXACIN HYDROCHLORIDE
     Indication: SINUSITIS
     Dosage: 400 MG, UNK
     Dates: start: 20081011, end: 20081020
  13. AVELOX [Suspect]
     Active Substance: MOXIFLOXACIN HYDROCHLORIDE
     Indication: SINUSITIS
     Dosage: UNK
     Dates: start: 200510, end: 200904

REACTIONS (16)
  - Pain [None]
  - Neuropathy peripheral [None]
  - Cardiovascular disorder [None]
  - Anxiety [None]
  - Paraesthesia [None]
  - Sensory disturbance [None]
  - Neuropathy peripheral [None]
  - Asthenia [None]
  - Injury [None]
  - Nervous system disorder [None]
  - Hypoaesthesia [None]
  - Skin injury [None]
  - Burning sensation [None]
  - Physical disability [None]
  - Musculoskeletal injury [None]
  - Mental disorder [None]

NARRATIVE: CASE EVENT DATE: 200511
